FAERS Safety Report 4459669-8 (Version None)
Quarter: 2004Q3

REPORT INFORMATION
  Report Type: 
  Country: None (occurrence: None)
  Receive Date: 20040923
  Receipt Date: 20040923
  Transmission Date: 20050211
  Serious: Yes (Hospitalization)
  Sender: FDA-Public Use
  Company Number: None

PATIENT
  Sex: Female
  Weight: 76.9754 kg

DRUGS (2)
  1. GEMCITABINE  1000MG/M2    ELI LILLY + CO [Suspect]
     Indication: NON-SMALL CELL LUNG CANCER STAGE IV
     Dosage: 1800MG  DAY 1 + 8  INTRAVENOUS
     Route: 042
     Dates: start: 20040920, end: 20040920
  2. CARBOPLATIN [Suspect]
     Indication: NON-SMALL CELL LUNG CANCER STAGE IV
     Dosage: 780MG  DAY 1 Q21DAYS  INTRAVENOUS
     Route: 042
     Dates: start: 20040920, end: 20040920

REACTIONS (6)
  - ANOREXIA [None]
  - DEHYDRATION [None]
  - MARKEDLY REDUCED DIETARY INTAKE [None]
  - NAUSEA [None]
  - VOMITING [None]
  - WEIGHT DECREASED [None]
